FAERS Safety Report 17534073 (Version 2)
Quarter: 2020Q2

REPORT INFORMATION
  Report Type: Report from Study
  Country: HU (occurrence: HU)
  Receive Date: 20200312
  Receipt Date: 20200403
  Transmission Date: 20200713
  Serious: Yes (Hospitalization)
  Sender: FDA-Public Use
  Company Number: HU-ASTRAZENECA-2020SE36674

PATIENT
  Age: 1 Year
  Sex: Female

DRUGS (1)
  1. SYNAGIS [Suspect]
     Active Substance: PALIVIZUMAB
     Indication: ANTIVIRAL PROPHYLAXIS
     Dosage: 50MG/0.5ML; SYNAGIS WAS GIVEN BASED ON BODY WEIGHT (MONTHLY)
     Route: 030
     Dates: start: 20191108

REACTIONS (2)
  - Asphyxia [Recovering/Resolving]
  - Respiratory syncytial virus infection [Recovered/Resolved]

NARRATIVE: CASE EVENT DATE: 20200302
